FAERS Safety Report 5633040-5 (Version None)
Quarter: 2008Q1

REPORT INFORMATION
  Report Type: 
  Country: None (occurrence: None)
  Receive Date: 20080214
  Receipt Date: 20080204
  Transmission Date: 20080703
  Serious: Yes (Other)
  Sender: FDA-Public Use
  Company Number: 2007-03636

PATIENT
  Age: 59 Year
  Sex: Female

DRUGS (2)
  1. VELCADE [Suspect]
     Indication: MULTIPLE MYELOMA
     Dosage: 1.30 MG/M2; 1.00 MG/M2
  2. DEXAMETHASONE TAB [Concomitant]

REACTIONS (10)
  - GASTROINTESTINAL HAEMORRHAGE [None]
  - GASTROINTESTINAL TOXICITY [None]
  - LEUKOCYTOCLASTIC VASCULITIS [None]
  - MULTIPLE MYELOMA [None]
  - NAUSEA [None]
  - STEM CELL TRANSPLANT [None]
  - THERAPEUTIC RESPONSE DECREASED [None]
  - TUMOUR LYSIS SYNDROME [None]
  - VASCULITIS GASTROINTESTINAL [None]
  - VOMITING [None]
